FAERS Safety Report 4892857-5 (Version None)
Quarter: 2006Q1

REPORT INFORMATION
  Report Type: 
  Country: None (occurrence: None)
  Receive Date: 20060126
  Receipt Date: 20050406
  Transmission Date: 20060701
  Serious: Yes (Hospitalization, Disabling, Other)
  Sender: FDA-Public Use
  Company Number: US-MERCK-0504USA01015

PATIENT
  Age: 49 Year
  Sex: Male
  Weight: 86 kg

DRUGS (5)
  1. VIOXX [Suspect]
     Indication: PAIN
     Route: 048
     Dates: start: 19990101, end: 20000101
  2. VIOXX [Suspect]
     Route: 048
     Dates: start: 19990101, end: 20000101
  3. VICODIN [Concomitant]
     Route: 065
  4. NORCO [Concomitant]
     Route: 065
  5. ELAVIL [Concomitant]
     Route: 065

REACTIONS (23)
  - ACUTE CORONARY SYNDROME [None]
  - ANGINA PECTORIS [None]
  - ANGINA UNSTABLE [None]
  - ANXIETY [None]
  - ARTERIAL STENOSIS LIMB [None]
  - ARTHRALGIA [None]
  - BACK INJURY [None]
  - BACK PAIN [None]
  - CARDIAC DISORDER [None]
  - CAROTID ARTERY OCCLUSION [None]
  - CAROTID ARTERY STENOSIS [None]
  - CERVICOBRACHIAL SYNDROME [None]
  - CHEST PAIN [None]
  - DRUG DEPENDENCE [None]
  - DYSPNOEA [None]
  - GALLBLADDER DISORDER [None]
  - HEADACHE [None]
  - HYPERTENSION [None]
  - LUMBAR RADICULOPATHY [None]
  - MENISCUS LESION [None]
  - MYOCARDIAL INFARCTION [None]
  - NECK PAIN [None]
  - ROAD TRAFFIC ACCIDENT [None]
